FAERS Safety Report 4843486-0 (Version None)
Quarter: 2005Q4

REPORT INFORMATION
  Report Type: 
  Country: None (occurrence: None)
  Receive Date: 20051101
  Receipt Date: 20050928
  Transmission Date: 20060501
  Serious: No
  Sender: FDA-Public Use
  Company Number: MK200509-0327-1

PATIENT
  Age: 68 Year
  Sex: Female

DRUGS (1)
  1. NEUTROSPEC [Suspect]
     Indication: PYREXIA
     Dosage: 20.6 MCI, ONE TIME, IV
     Route: 042
     Dates: start: 20050927, end: 20050927

REACTIONS (4)
  - COLD SWEAT [None]
  - DYSPNOEA [None]
  - OXYGEN SATURATION DECREASED [None]
  - TACHYCARDIA [None]
